FAERS Safety Report 6431848-X (Version None)
Quarter: 2009Q4

REPORT INFORMATION
  Report Type: 
  Country: None (occurrence: None)
  Receive Date: 20091108
  Receipt Date: 20091030
  Transmission Date: 20100525
  Serious: Yes (Hospitalization, Other)
  Sender: FDA-Public Use
  Company Number: PHEH2009US13693

PATIENT
  Sex: Female
  Weight: 40.816 kg

DRUGS (7)
  1. EXJADE [Suspect]
     Indication: MYELODYSPLASTIC SYNDROME
     Dosage: 125 MG, QD
     Route: 048
     Dates: start: 20090826, end: 20090902
  2. EXJADE [Suspect]
     Indication: IRON OVERLOAD
     Dosage: 625 MG DAILY
     Route: 048
     Dates: start: 20090902, end: 20091014
  3. EXJADE [Suspect]
     Indication: TRANSFUSION
  4. ACTONEL [Concomitant]
     Indication: OSTEOPOROSIS
     Dosage: 35 MG, QW
     Route: 048
  5. ADVAIR DISKUS 100/50 [Concomitant]
     Indication: CHRONIC OBSTRUCTIVE PULMONARY DISEASE
     Dosage: UNK, BID
  6. PREDNISONE [Concomitant]
     Indication: ARTHRITIS
     Dosage: 5 MG, QD
     Route: 048
  7. DARVOCET-N 100 [Concomitant]
     Indication: PAIN
     Dosage: UNK, EVERY SIX HOURS AS NEEDED FOR PAIN
     Route: 048

REACTIONS (7)
  - ABDOMINAL DISCOMFORT [None]
  - CHILLS [None]
  - DIVERTICULITIS [None]
  - DRUG INTOLERANCE [None]
  - MALAISE [None]
  - PYREXIA [None]
  - TRANSAMINASES INCREASED [None]
